FAERS Safety Report 25061473 (Version 1)
Quarter: 2025Q1

REPORT INFORMATION
  Report Type: Spontaneous
  Country: IL (occurrence: IL)
  Receive Date: 20250311
  Receipt Date: 20250311
  Transmission Date: 20250408
  Serious: Yes (Other)
  Sender: ABBVIE
  Company Number: IL-ABBVIE-6168112

PATIENT
  Age: 60 Year
  Sex: Female

DRUGS (1)
  1. ELAHERE [Suspect]
     Active Substance: MIRVETUXIMAB SORAVTANSINE-GYNX
     Indication: Ovarian cancer
     Route: 042

REACTIONS (5)
  - Blindness [Unknown]
  - Herpes ophthalmic [Unknown]
  - Eye ulcer [Unknown]
  - Visual impairment [Unknown]
  - Eye pain [Unknown]
